FAERS Safety Report 6874192-9 (Version None)
Quarter: 2010Q3

REPORT INFORMATION
  Report Type: 
  Country: None (occurrence: None)
  Receive Date: 20100723
  Receipt Date: 20090429
  Transmission Date: 20110219
  Serious: No
  Sender: FDA-Public Use
  Company Number: US-PFIZER INC-2009206122

PATIENT
  Age: 40 Year
  Sex: Female

DRUGS (4)
  1. CHANTIX [Suspect]
  2. NICORETTE [Suspect]
  3. NICOTINE [Suspect]
     Indication: SMOKING CESSATION THERAPY
     Dosage: 14 MG, 1X/DAY
     Route: 062
     Dates: start: 20090101
  4. NICOTINE [Suspect]
     Dosage: 14 MG, 1X/DAY
     Route: 062
     Dates: start: 20090101

REACTIONS (5)
  - APPLICATION SITE ERYTHEMA [None]
  - APPLICATION SITE PRURITUS [None]
  - APPLICATION SITE RASH [None]
  - DRUG INEFFECTIVE [None]
  - TREATMENT NONCOMPLIANCE [None]
